FAERS Safety Report 9378167 (Version 3)
Quarter: 2014Q1

REPORT INFORMATION
  Report Type: Spontaneous
  Country: GB (occurrence: GB)
  Receive Date: 20130701
  Receipt Date: 20140108
  Transmission Date: 20141002
  Serious: Yes (Hospitalization)
  Sender: FDA-Public Use
  Company Number: GB-GLAXOSMITHKLINE-B0902855A

PATIENT
  Age: 52 Year
  Sex: Male

DRUGS (11)
  1. AVANDIA [Suspect]
     Indication: TYPE 2 DIABETES MELLITUS
     Route: 065
     Dates: start: 20040310, end: 20100401
  2. AVANDAMET [Suspect]
     Indication: TYPE 2 DIABETES MELLITUS
     Dates: start: 20040804
  3. METFORMIN [Concomitant]
  4. LIPOSTAT [Concomitant]
  5. GLICLAZIDE [Concomitant]
  6. GABAPENTIN [Concomitant]
     Indication: NEURALGIA
  7. PREGABALIN [Concomitant]
  8. COVERSYL [Concomitant]
  9. AMITRIPTYLINE [Concomitant]
  10. ATORVASTATIN [Concomitant]
  11. SIMVASTATIN [Concomitant]

REACTIONS (3)
  - Angina pectoris [Unknown]
  - Myocardial ischaemia [Unknown]
  - Chest pain [Unknown]
